FAERS Safety Report 6010890-7 (Version None)
Quarter: 2008Q4

REPORT INFORMATION
  Report Type: 
  Country: None (occurrence: None)
  Receive Date: 20081217
  Receipt Date: 20081217
  Transmission Date: 20090506
  Serious: Yes (Hospitalization)
  Sender: FDA-Public Use
  Company Number: None

PATIENT
  Sex: Female
  Weight: 63.5036 kg

DRUGS (1)
  1. LAMOTRIGINE [Suspect]
     Indication: EPILEPSY
     Dosage: 200MG BID PO
     Route: 048
     Dates: start: 20081110, end: 20081201

REACTIONS (3)
  - ABASIA [None]
  - DIZZINESS [None]
  - PRODUCT QUALITY ISSUE [None]
